FAERS Safety Report 5940184-7 (Version None)
Quarter: 2008Q4

REPORT INFORMATION
  Report Type: 
  Country: None (occurrence: None)
  Receive Date: 20081104
  Receipt Date: 20081029
  Transmission Date: 20090506
  Serious: Yes (Hospitalization, Other)
  Sender: FDA-Public Use
  Company Number: JP-AVENTIS-200811465JP

PATIENT
  Age: 56 Year
  Sex: Male

DRUGS (2)
  1. LANTUS [Suspect]
     Route: 058
     Dates: start: 20080508, end: 20080514
  2. AMARYL [Concomitant]
     Route: 048
     Dates: end: 20080508

REACTIONS (1)
  - HEPATITIS ACUTE [None]
